FAERS Safety Report 10365915 (Version 1)
Quarter: 2014Q3

REPORT INFORMATION
  Report Type: Spontaneous
  Country: GR (occurrence: None)
  Receive Date: 20140804
  Receipt Date: 20140804
  Transmission Date: 20150326
  Serious: Yes (Other)
  Sender: FDA-Public Use
  Company Number: 2014GR00941

PATIENT
  Sex: Female

DRUGS (7)
  1. METHOTREXATE (METHOTREXATE) [Suspect]
     Active Substance: METHOTREXATE
     Indication: BREAST CANCER
     Dosage: 3 CYCLES, EVERY 2 WEEKS
  2. FLUOROURACIL (FLUOROURACIL) [Suspect]
     Active Substance: FLUOROURACIL
     Indication: BREAST CANCER
     Dosage: 3 CYCLES, EVERY 2 WEEKS
  3. CYCLOPHOSPHAMIDE (CYCLOPHOSPHAMIDE) [Suspect]
     Active Substance: CYCLOPHOSPHAMIDE
     Indication: BREAST CANCER
     Dosage: 3 CYCLES, EVERY 2 WEEKS
  4. DOCETAXEL (DOCETAXEL) [Suspect]
     Active Substance: DOCETAXEL
     Indication: BREAST CANCER
     Dosage: 9 CONSECUTIVE WEEKLY CYCLES OF DOCETAXEL (WD)
  5. ONDANSETRON [Concomitant]
     Active Substance: ONDANSETRON
  6. DEXAMETHASONE (DEXAMETHASONE) [Concomitant]
     Active Substance: DEXAMETHASONE
  7. EPIRUBICIN (EPIRUBICIN HYDROCHLORIDE) INJECTION [Suspect]
     Active Substance: EPIRUBICIN
     Indication: BREAST CANCER
     Dosage: THREE CYCLES OF EPIRUBICIN EVERY 2 WEEKS

REACTIONS (1)
  - Metabolic function test abnormal [None]
